FAERS Safety Report 7366849-0 (Version None)
Quarter: 2011Q1

REPORT INFORMATION
  Report Type: 
  Country: None (occurrence: None)
  Receive Date: 20110322
  Receipt Date: 20110317
  Transmission Date: 20110831
  Serious: No
  Sender: FDA-Public Use
  Company Number: US-TEVA-272098USA

PATIENT
  Sex: Female
  Weight: 55.842 kg

DRUGS (5)
  1. MULTIVITAMIN [Concomitant]
     Indication: MEDICAL DIET
  2. PLAN B ONE-STEP [Suspect]
     Indication: POST COITAL CONTRACEPTION
     Route: 048
     Dates: start: 20110311, end: 20110311
  3. LORATADINE [Concomitant]
     Indication: NASAL CONGESTION
  4. PROBIOTICS [Concomitant]
     Indication: MEDICAL DIET
  5. NASONEX [Concomitant]
     Indication: NASAL CONGESTION

REACTIONS (1)
  - MENSTRUATION IRREGULAR [None]
